FAERS Safety Report 9311481 (Version 1)
Quarter: 2013Q1

REPORT INFORMATION
  Report Type: Spontaneous
  Country: BE (occurrence: None)
  Receive Date: 20121204
  Receipt Date: 20121204
  Transmission Date: 20140127
  Serious: Yes (Hospitalization)
  Sender: FDA-Public Use
  Company Number: ACO_32563_2012

PATIENT
  Age: 33 Year
  Sex: Female

DRUGS (10)
  1. FAMPRIDINE-SR (FAMPRIDINE) TABLET [Suspect]
     Indication: MULTIPLE SCLEROSIS
     Route: 048
     Dates: start: 20120706
  2. REBIF (INTERFERON BETA-1A) [Concomitant]
  3. LUTENYL (NOMEGESTEROL ACETATE) [Concomitant]
  4. XANAX (ALPRAZOLAM) [Concomitant]
  5. LIORESAL (BACLOFEN) [Concomitant]
  6. MACROGOL (MACROGOL) [Concomitant]
  7. DICETEL (PINAVERIUM BROMIDE) [Concomitant]
  8. GILENYA (FINGOLIMOD HYDROCHLORIDE) [Concomitant]
  9. IXEL (MILNACIPRAN HYDROCHLORIDE) [Concomitant]
  10. NORDAZ (NORDAZEPAM) [Concomitant]

REACTIONS (1)
  - Arrhythmia [None]
